FAERS Safety Report 7612337-3 (Version None)
Quarter: 2011Q3

REPORT INFORMATION
  Report Type: 
  Country: None (occurrence: None)
  Receive Date: 20110715
  Receipt Date: 20110706
  Transmission Date: 20111222
  Serious: Yes (Hospitalization)
  Sender: FDA-Public Use
  Company Number: BR-ASTRAZENECA-2011SE40875

PATIENT
  Age: 78 Year
  Sex: Female
  Weight: 65 kg

DRUGS (4)
  1. ATENSIN [Concomitant]
     Indication: HYPERTENSION
     Dosage: OD
     Route: 048
     Dates: start: 20090101
  2. ATACAND HCT [Suspect]
     Indication: HYPERTENSION
     Dosage: 16/12.5 MG, ONCE DAILY
     Route: 048
     Dates: start: 20090101, end: 20110601
  3. BONIVA [Concomitant]
     Indication: PROPHYLAXIS
     Dosage: MONTHLY
     Route: 048
     Dates: start: 20110601
  4. CALCIUM CARBONATE [Concomitant]
     Indication: PROPHYLAXIS
     Dosage: OD
     Route: 048
     Dates: start: 20110601

REACTIONS (3)
  - DRUG INEFFECTIVE [None]
  - BLOOD PRESSURE INADEQUATELY CONTROLLED [None]
  - HYPERCHOLESTEROLAEMIA [None]
